FAERS Safety Report 9606266 (Version 2)
Quarter: 2013Q4

REPORT INFORMATION
  Report Type: Spontaneous
  Country: US (occurrence: US)
  Receive Date: 20131008
  Receipt Date: 20131008
  Transmission Date: 20140711
  Serious: No
  Sender: FDA-Public Use
  Company Number: US-AMGEN-USASP2013039873

PATIENT
  Age: 80 Year
  Sex: Female
  Weight: 64.8 kg

DRUGS (1)
  1. PROLIA [Suspect]
     Indication: OSTEOPOROSIS
     Dosage: 60 MG, Q6MO
     Route: 058
     Dates: start: 20120627

REACTIONS (5)
  - Vasodilatation [Recovering/Resolving]
  - Abdominal distension [Recovered/Resolved]
  - Local swelling [Recovered/Resolved]
  - Back pain [Recovering/Resolving]
  - Abdominal pain upper [Recovered/Resolved]
